FAERS Safety Report 8329353-9 (Version None)
Quarter: 2012Q2

REPORT INFORMATION
  Report Type: 
  Country: None (occurrence: None)
  Receive Date: 20120502
  Receipt Date: 20120423
  Transmission Date: 20120825
  Serious: Yes (Hospitalization)
  Sender: FDA-Public Use
  Company Number: JP-VERTEX PHARMACEUTICALS INC.-AE-2012-003017

PATIENT
  Age: 65 Year
  Sex: Female

DRUGS (13)
  1. GASMOTIN [Concomitant]
     Route: 048
     Dates: start: 20120126
  2. TELAVIC (TELAPREVIR) [Suspect]
     Route: 048
     Dates: start: 20120306, end: 20120403
  3. REBETOL [Concomitant]
     Route: 048
     Dates: start: 20120224, end: 20120227
  4. PEG-INTRON [Concomitant]
     Route: 058
     Dates: end: 20120407
  5. PEG-INTRON [Concomitant]
     Indication: HEPATITIS C
     Route: 058
     Dates: start: 20120124, end: 20120403
  6. ALLOPURINOL [Concomitant]
     Route: 048
     Dates: start: 20120204
  7. BETAMAC [Concomitant]
     Route: 048
     Dates: start: 20120128, end: 20120213
  8. TELAVIC (TELAPREVIR) [Suspect]
     Indication: HEPATITIS C
     Route: 048
     Dates: start: 20120124, end: 20120216
  9. REBETOL [Concomitant]
     Indication: HEPATITIS C
     Route: 048
     Dates: start: 20120124, end: 20120130
  10. TELAVIC (TELAPREVIR) [Suspect]
     Route: 048
     Dates: end: 20120407
  11. REBETOL [Concomitant]
     Route: 048
     Dates: end: 20120407
  12. REBETOL [Concomitant]
     Route: 048
     Dates: start: 20120131, end: 20120223
  13. REBETOL [Concomitant]
     Route: 048
     Dates: start: 20120306, end: 20120403

REACTIONS (4)
  - BLOOD URIC ACID INCREASED [None]
  - MALAISE [None]
  - ANAEMIA [None]
  - BLOOD CREATININE INCREASED [None]
